FAERS Safety Report 7236025-0 (Version None)
Quarter: 2011Q1

REPORT INFORMATION
  Report Type: 
  Country: None (occurrence: None)
  Receive Date: 20110120
  Receipt Date: 20101130
  Transmission Date: 20110831
  Serious: Yes (Hospitalization, Other)
  Sender: FDA-Public Use
  Company Number: US-BAYER-201032619NA

PATIENT
  Sex: Female
  Weight: 67.574 kg

DRUGS (12)
  1. UNKNOWN [Concomitant]
     Indication: PRODUCT USED FOR UNKNOWN INDICATION
     Dosage: 4 MG, UNK
     Route: 048
     Dates: start: 20041230
  2. ASCORBIC ACID [Concomitant]
     Indication: PRODUCT USED FOR UNKNOWN INDICATION
  3. UNKNOWN [Concomitant]
     Indication: BRONCHITIS
     Dosage: UNK
     Route: 048
     Dates: start: 20050207
  4. ZANTAC [Concomitant]
     Indication: PAIN
     Dosage: UNK
     Dates: start: 20041201
  5. DARVOCET [Concomitant]
     Indication: PAIN
     Dosage: UNK
     Route: 048
     Dates: start: 20041201
  6. UNKNOWN [Concomitant]
     Dosage: UNK
     Dates: start: 20041226
  7. PRILOSEC [Concomitant]
     Indication: GASTROOESOPHAGEAL REFLUX DISEASE
     Dosage: 20 MG, QD
     Route: 048
     Dates: start: 20041228
  8. PROTONIX [Concomitant]
     Indication: ABDOMINAL DISCOMFORT
     Dosage: 40 MG, UNK
     Route: 048
  9. ZITHROMAX [Concomitant]
     Indication: BRONCHITIS
     Dosage: 250 MG, UNK
     Dates: start: 20050207
  10. NSAID'S [Concomitant]
     Indication: PRODUCT USED FOR UNKNOWN INDICATION
  11. YASMIN [Suspect]
     Indication: CONTRACEPTION
     Dosage: UNK
     Route: 048
     Dates: start: 20041201, end: 20051201
  12. MYLANTA [CALCIUM CARBONATE] [Concomitant]
     Indication: PRODUCT USED FOR UNKNOWN INDICATION
     Dosage: UNK
     Dates: start: 20041226

REACTIONS (4)
  - MENTAL DISORDER [None]
  - VOMITING [None]
  - ABDOMINAL PAIN [None]
  - CHOLECYSTITIS [None]
